FAERS Safety Report 9110094 (Version 1)
Quarter: 2013Q1

REPORT INFORMATION
  Report Type: Spontaneous
  Country: DE (occurrence: DE)
  Receive Date: 20130222
  Receipt Date: 20130222
  Transmission Date: 20140127
  Serious: Yes (Congenital Anomaly, Other)
  Sender: FDA-Public Use
  Company Number: DE-ASTRAZENECA-2013SE10236

PATIENT
  Sex: Female
  Weight: 3.4 kg

DRUGS (1)
  1. SEROQUEL PROLONG [Suspect]
     Indication: PSYCHOTIC DISORDER
     Route: 064
     Dates: start: 201109

REACTIONS (2)
  - Kinematic imbalances due to suboccipital strain [Unknown]
  - Maternal drugs affecting foetus [None]
